FAERS Safety Report 8806787 (Version 2)
Quarter: 2015Q2

REPORT INFORMATION
  Report Type: Report from Study
  Country: US (occurrence: US)
  Receive Date: 20120925
  Receipt Date: 20150626
  Transmission Date: 20150821
  Serious: Yes (Death)
  Sender: FDA-Public Use
  Company Number: US-ROCHE-1128245

PATIENT
  Age: 56 Year
  Sex: Male

DRUGS (12)
  1. CARBOPLATIN. [Concomitant]
     Active Substance: CARBOPLATIN
     Route: 042
     Dates: start: 20060116
  2. VITAMIN B12 [Concomitant]
     Active Substance: CYANOCOBALAMIN
  3. DECADRON [Concomitant]
     Active Substance: DEXAMETHASONE
     Route: 042
  4. MS CONTIN [Concomitant]
     Active Substance: MORPHINE SULFATE
     Route: 065
  5. FOLATE [Concomitant]
     Active Substance: FOLATE SODIUM
  6. AVASTIN [Suspect]
     Active Substance: BEVACIZUMAB
     Indication: LUNG NEOPLASM MALIGNANT
     Route: 042
     Dates: start: 20060116
  7. LASIX [Concomitant]
     Active Substance: FUROSEMIDE
     Route: 042
  8. ALOXI [Concomitant]
     Active Substance: PALONOSETRON HYDROCHLORIDE
     Route: 042
  9. VICODIN [Concomitant]
     Active Substance: ACETAMINOPHEN\HYDROCODONE BITARTRATE
  10. METAMUCIL [Concomitant]
     Active Substance: PLANTAGO SEED
  11. TAXOTERE [Concomitant]
     Active Substance: DOCETAXEL
     Route: 042
     Dates: start: 20060116
  12. AMBIEN [Concomitant]
     Active Substance: ZOLPIDEM TARTRATE

REACTIONS (20)
  - Alopecia [Unknown]
  - Pleural effusion [Unknown]
  - Constipation [Unknown]
  - Breath sounds abnormal [Unknown]
  - Weight decreased [Unknown]
  - Pleural fibrosis [Unknown]
  - Orthopnoea [Unknown]
  - Death [Fatal]
  - Pain [Unknown]
  - Fatigue [Unknown]
  - Cough [Unknown]
  - Scar [Unknown]
  - Wheezing [Unknown]
  - Arrhythmia [Unknown]
  - Hyperglycaemia [Unknown]
  - Depression [Unknown]
  - Insomnia [Unknown]
  - Ill-defined disorder [Unknown]
  - Nail disorder [Unknown]
  - Off label use [Unknown]

NARRATIVE: CASE EVENT DATE: 200607
